FAERS Safety Report 25724655 (Version 1)
Quarter: 2025Q3

REPORT INFORMATION
  Report Type: Spontaneous
  Country: OM (occurrence: OM)
  Receive Date: 20250826
  Receipt Date: 20250826
  Transmission Date: 20251021
  Serious: Yes (Other)
  Sender: CHEPLAPHARM
  Company Number: OM-CHEPLA-2025010058

PATIENT
  Age: 6 Week
  Sex: Female
  Weight: 2.0999 kg

DRUGS (3)
  1. VALGANCICLOVIR [Suspect]
     Active Substance: VALGANCICLOVIR
     Indication: Congenital cytomegalovirus infection
     Dosage: DAILY DOSE: 32 MILLIGRAM/KG
  2. SILDENAFIL [Concomitant]
     Active Substance: SILDENAFIL
  3. NITRIC OXIDE [Concomitant]
     Active Substance: NITRIC OXIDE
     Route: 055

REACTIONS (4)
  - Failure to thrive [Unknown]
  - Tachypnoea [Unknown]
  - Clubbing [Unknown]
  - Off label use [Recovered/Resolved]
